FAERS Safety Report 16576703 (Version 1)
Quarter: 2019Q3

REPORT INFORMATION
  Report Type: Spontaneous
  Country: DE (occurrence: DE)
  Receive Date: 20190716
  Receipt Date: 20190716
  Transmission Date: 20191004
  Serious: Yes (Hospitalization)
  Sender: FDA-Public Use
  Company Number: DE-TEVA-2019-DE-1077136

PATIENT
  Age: 83 Year
  Sex: Female
  Weight: 65 kg

DRUGS (6)
  1. RAMIPRIL. [Concomitant]
     Active Substance: RAMIPRIL
     Dosage: 5 MG, 1-0-1, TABLETS
     Route: 048
  2. KALIUMCHLORID [Concomitant]
     Active Substance: POTASSIUM CHLORIDE
     Dosage: 600 MG, 0-1-0, PROLONGED-RELEASE TABLETS
     Route: 048
  3. ACETYLSALICYLSAEURE [Concomitant]
     Active Substance: ASPIRIN
     Dosage: 100 MG, 1-0-0, TABLETS
     Route: 048
  4. MOVICOL [Concomitant]
     Active Substance: POLYETHYLENE GLYCOL 3350\POTASSIUM CHLORIDE\SODIUM BICARBONATE\SODIUM CHLORIDE
     Dosage: 1-1-0, POWDER
     Route: 048
  5. METOPROLOL. [Concomitant]
     Active Substance: METOPROLOL
     Dosage: 47.5 MG, 1-0-1, PROLONGED-RELEASE TABLETS
     Route: 048
  6. HYDROCHLOROTHIAZID [Suspect]
     Active Substance: HYDROCHLOROTHIAZIDE
     Dosage: 12.5 MG, 1-0-0, PROLONGED-RELEASE TABLETS
     Route: 048

REACTIONS (6)
  - Product prescribing error [Unknown]
  - Hypertensive emergency [Unknown]
  - Haematemesis [Unknown]
  - Dizziness [Unknown]
  - Hyponatraemia [Unknown]
  - Depressed level of consciousness [Unknown]
